FAERS Safety Report 16302231 (Version 1)
Quarter: 2019Q2

REPORT INFORMATION
  Report Type: Spontaneous
  Country: US (occurrence: US)
  Receive Date: 20190512
  Receipt Date: 20190512
  Transmission Date: 20190711
  Serious: No
  Sender: FDA-Public Use
  Company Number: US-SHIRE-US201915506

PATIENT
  Sex: Female

DRUGS (1)
  1. GATTEX [Suspect]
     Active Substance: TEDUGLUTIDE\WATER
     Indication: PRODUCT USED FOR UNKNOWN INDICATION
     Dosage: 0.025 MILLIGRAM/KILOGRAM
     Route: 065

REACTIONS (6)
  - Joint swelling [Unknown]
  - Abdominal distension [Unknown]
  - Peripheral swelling [Unknown]
  - Stoma complication [Unknown]
  - Weight increased [Unknown]
  - Pruritus [Unknown]
